FAERS Safety Report 23565887 (Version 2)
Quarter: 2024Q1

REPORT INFORMATION
  Report Type: Spontaneous
  Country: IE (occurrence: IE)
  Receive Date: 20240226
  Receipt Date: 20240228
  Transmission Date: 20240410
  Serious: Yes (Other)
  Sender: FDA-Public Use
  Company Number: IE-SANDOZ-SDZ2023IE013857

PATIENT
  Age: 52 Year
  Sex: Female

DRUGS (2)
  1. ADALIMUMAB [Suspect]
     Active Substance: ADALIMUMAB\ISOPROPYL ALCOHOL
     Indication: Rheumatoid arthritis
     Dosage: UNK
     Route: 065
  2. CLOBETASOL PROPIONATE [Suspect]
     Active Substance: CLOBETASOL PROPIONATE
     Indication: Palmoplantar pustulosis
     Dosage: UNK
     Route: 065

REACTIONS (3)
  - Palmoplantar pustulosis [Recovering/Resolving]
  - Tooth abscess [Unknown]
  - Off label use [Unknown]
